FAERS Safety Report 8797016 (Version 1)
Quarter: 2012Q4

REPORT INFORMATION
  Report Type: 
  Country: US (occurrence: US)
  Receive Date: 20120919
  Receipt Date: 20120919
  Transmission Date: 20130627
  Serious: Yes (Hospitalization, Other)
  Sender: FDA-Public Use
  Company Number: US-009507513-1104USA03724

PATIENT

DRUGS (9)
  1. FOSAMAX [Suspect]
     Indication: MUSCLE SPASMS
     Dosage: 70 mg, QW
     Route: 048
     Dates: start: 199802, end: 200712
  2. FOSAMAX [Suspect]
     Indication: OSTEOPOROSIS
  3. MK-9278 [Concomitant]
     Dates: start: 1990
  4. CALCIUM (UNSPECIFIED) [Concomitant]
     Dates: start: 1990
  5. IRON (UNSPECIFIED) [Concomitant]
     Dates: start: 1990
  6. POTASSIUM (UNSPECIFIED) [Concomitant]
     Dates: start: 1990
  7. MAGNESIUM (UNSPECIFIED) [Concomitant]
     Dates: start: 1990
  8. RECLAST [Concomitant]
     Indication: OSTEOPOROSIS
     Dosage: UNK UNK, ONCE
     Dates: start: 200802
  9. THERAPY UNSPECIFIED [Concomitant]
     Indication: RHEUMATOID ARTHRITIS

REACTIONS (58)
  - Femur fracture [Not Recovered/Not Resolved]
  - Internal fixation of fracture [Not Recovered/Not Resolved]
  - Open reduction of fracture [Not Recovered/Not Resolved]
  - Secondary hypothyroidism [Unknown]
  - Urinary tract infection [Unknown]
  - Atelectasis [Unknown]
  - Anaemia postoperative [Unknown]
  - Toxic shock syndrome [Unknown]
  - Type 2 diabetes mellitus [Unknown]
  - Adrenal insufficiency [Unknown]
  - Bladder disorder [Unknown]
  - Prolapse repair [Unknown]
  - Bladder operation [Unknown]
  - Dehydration [Unknown]
  - Femur fracture [Not Recovered/Not Resolved]
  - Hypertension [Recovered/Resolved]
  - Rheumatoid arthritis [Unknown]
  - Myopathy [Unknown]
  - Arthropathy [Unknown]
  - Sciatica [Unknown]
  - Intervertebral disc degeneration [Unknown]
  - Spinal column stenosis [Not Recovered/Not Resolved]
  - Osteoarthritis [Unknown]
  - White blood cell count increased [Unknown]
  - Arthropathy [Unknown]
  - Neuroma [Unknown]
  - Localised infection [Not Recovered/Not Resolved]
  - Cellulitis [Unknown]
  - Skin mass [Unknown]
  - Foot deformity [Unknown]
  - Exostosis [Unknown]
  - Hyperkeratosis [Unknown]
  - Meniscus injury [Unknown]
  - Bunion [Unknown]
  - Depression [Unknown]
  - Adverse drug reaction [Unknown]
  - Adverse drug reaction [Unknown]
  - Anxiety [Unknown]
  - Neuropathy peripheral [Not Recovered/Not Resolved]
  - Dyslipidaemia [Not Recovered/Not Resolved]
  - Tarsal tunnel syndrome [Unknown]
  - Renal cyst [Unknown]
  - Cardiac disorder [Unknown]
  - Biopsy uterus [Unknown]
  - Bursitis [Not Recovered/Not Resolved]
  - Foot amputation [Unknown]
  - Osteitis [Unknown]
  - Metrorrhagia [Unknown]
  - Uterine prolapse [Unknown]
  - Stress urinary incontinence [Unknown]
  - Foot deformity [Unknown]
  - Granuloma [Unknown]
  - Abscess limb [Unknown]
  - Hypersensitivity [Not Recovered/Not Resolved]
  - Abdominal discomfort [Unknown]
  - Nausea [Unknown]
  - Arthralgia [Unknown]
  - Pain in extremity [Unknown]
